FAERS Safety Report 5137320-1 (Version None)
Quarter: 2006Q4

REPORT INFORMATION
  Report Type: 
  Country: None (occurrence: None)
  Receive Date: 20061030
  Receipt Date: 20051010
  Transmission Date: 20070319
  Serious: No
  Sender: FDA-Public Use
  Company Number: US-GLAXOSMITHKLINE-A0577758A

PATIENT
  Age: 51 Year
  Sex: Female
  Weight: 68.6 kg

DRUGS (4)
  1. ADVAIR HFA [Suspect]
     Indication: ASTHMA
     Route: 055
     Dates: start: 20050309, end: 20051006
  2. ALBUTEROL [Concomitant]
  3. SINGULAIR [Concomitant]
  4. NASAL SALINE [Concomitant]

REACTIONS (2)
  - NASOPHARYNGEAL DISORDER [None]
  - PHARMACEUTICAL PRODUCT COMPLAINT [None]
